FAERS Safety Report 24031086 (Version 2)
Quarter: 2024Q3

REPORT INFORMATION
  Report Type: Spontaneous
  Country: TH (occurrence: TH)
  Receive Date: 20240628
  Receipt Date: 20240702
  Transmission Date: 20241017
  Serious: Yes (Death, Hospitalization, Other)
  Sender: MERCK
  Company Number: TH-009507513-2406THA010254

PATIENT
  Age: 21 Year
  Sex: Female

DRUGS (15)
  1. KEYTRUDA [Suspect]
     Active Substance: PEMBROLIZUMAB
     Indication: Triple negative breast cancer
     Dosage: PEMBROLIZUMAB 200 MG; 2CYCLES
     Dates: start: 2023
  2. KEYTRUDA [Suspect]
     Active Substance: PEMBROLIZUMAB
     Dosage: PEMBROLIZUMAB 200 MG
     Dates: start: 202305
  3. KEYTRUDA [Suspect]
     Active Substance: PEMBROLIZUMAB
     Dosage: PEMBROLIZUMAB 200 MG
     Dates: start: 202308
  4. CARBOPLATIN [Suspect]
     Active Substance: CARBOPLATIN
     Indication: Triple negative breast cancer
     Dosage: 1ST CARBOPLATIN/ PACLITAXEL + PEMBROLIZUMAB 200 MG
     Dates: start: 2023
  5. CARBOPLATIN [Suspect]
     Active Substance: CARBOPLATIN
     Dosage: LAST CARBOPLATIN/ PACLITAXEL + PEMBROLIZUMAB 200 MG
     Dates: start: 202308
  6. PACLITAXEL [Suspect]
     Active Substance: PACLITAXEL
     Indication: Triple negative breast cancer
     Dosage: 1ST CARBOPLATIN/ PACLITAXEL + PEMBROLIZUMAB 200 MG
     Dates: start: 2023
  7. PACLITAXEL [Suspect]
     Active Substance: PACLITAXEL
     Dosage: LAST CARBOPLATIN/ PACLITAXEL + PEMBROLIZUMAB 200 MG
     Dates: start: 202308
  8. DOXORUBICIN [Suspect]
     Active Substance: DOXORUBICIN
     Indication: Triple negative breast cancer
     Dosage: 1ST DOXORUBICIN/CYCLOPHOSPHAMIDE
     Dates: start: 20230223
  9. DOXORUBICIN [Suspect]
     Active Substance: DOXORUBICIN
     Dosage: 2ND DOXORUBICIN/CYCLOPHOSPHAMIDE
     Dates: start: 20230323
  10. DOXORUBICIN [Suspect]
     Active Substance: DOXORUBICIN
     Dosage: 3RD DOXORUBICIN/CYCLOPHOSPHAMIDE
     Dates: start: 202304
  11. DOXORUBICIN [Suspect]
     Active Substance: DOXORUBICIN
     Dosage: 4TH DOXORUBICIN/CYCLOPHOSPHAMIDE + PEMBROLIZUMAB 200 MG
     Dates: start: 202305
  12. CYCLOPHOSPHAMIDE [Suspect]
     Active Substance: CYCLOPHOSPHAMIDE
     Indication: Triple negative breast cancer
     Dosage: 1ST DOXORUBICIN/CYCLOPHOSPHAMIDE
     Dates: start: 20230223
  13. CYCLOPHOSPHAMIDE [Suspect]
     Active Substance: CYCLOPHOSPHAMIDE
     Dosage: 2ND DOXORUBICIN/CYCLOPHOSPHAMIDE
     Dates: start: 20230323
  14. CYCLOPHOSPHAMIDE [Suspect]
     Active Substance: CYCLOPHOSPHAMIDE
     Dosage: 3RD DOXORUBICIN/CYCLOPHOSPHAMIDE
     Dates: start: 202304
  15. CYCLOPHOSPHAMIDE [Suspect]
     Active Substance: CYCLOPHOSPHAMIDE
     Dosage: 4TH DOXORUBICIN/CYCLOPHOSPHAMIDE + PEMBROLIZUMAB 200 MG
     Dates: start: 202305

REACTIONS (15)
  - Death [Fatal]
  - Malignant neoplasm progression [Unknown]
  - Lower respiratory tract infection [Unknown]
  - Lymphangitis [Unknown]
  - Gastrointestinal haemorrhage [Unknown]
  - Respiratory failure [Unknown]
  - Alopecia [Unknown]
  - Peripheral sensory neuropathy [Unknown]
  - Myalgia [Unknown]
  - Cough [Unknown]
  - Decreased appetite [Unknown]
  - Nausea [Unknown]
  - Vomiting [Unknown]
  - Pyrexia [Unknown]
  - Surgery [Unknown]

NARRATIVE: CASE EVENT DATE: 20230101
